FAERS Safety Report 5223928-1 (Version None)
Quarter: 2007Q1

REPORT INFORMATION
  Report Type: 
  Country: None (occurrence: None)
  Receive Date: 20070130
  Receipt Date: 20070122
  Transmission Date: 20070707
  Serious: Yes (Hospitalization)
  Sender: FDA-Public Use
  Company Number: GB-ROCHE-472356

PATIENT
  Age: 34 Year
  Sex: Female
  Weight: 92 kg

DRUGS (8)
  1. XENICAL [Suspect]
     Indication: OBESITY
     Route: 048
     Dates: start: 20050823
  2. SEROXAT [Concomitant]
     Dates: start: 20020715
  3. OXYBUTYNIN [Concomitant]
     Indication: INCONTINENCE
     Route: 048
     Dates: start: 19940615
  4. AUGMENTIN '125' [Concomitant]
  5. SALBUTAMOL [Concomitant]
     Indication: ASTHMA
     Route: 055
     Dates: start: 20020615
  6. GAVISCON [Concomitant]
  7. BECLAZONE [Concomitant]
     Indication: ASTHMA
     Route: 055
     Dates: start: 20020615
  8. LACTULOSE [Concomitant]

REACTIONS (2)
  - CHOLECYSTITIS ACUTE [None]
  - CHOLELITHIASIS [None]
